FAERS Safety Report 7927866-2 (Version None)
Quarter: 2011Q4

REPORT INFORMATION
  Report Type: 
  Country: None (occurrence: None)
  Receive Date: 20111118
  Receipt Date: 20111118
  Transmission Date: 20120403
  Serious: No
  Sender: FDA-Public Use
  Company Number: None

PATIENT

DRUGS (1)
  1. SUBOXONE [Suspect]
     Indication: DRUG ABUSE
     Dosage: 8 MG AND 4MG
     Route: 060
     Dates: start: 20110825, end: 20111117

REACTIONS (2)
  - DRUG EFFECT DECREASED [None]
  - PRODUCT PHYSICAL ISSUE [None]
